FAERS Safety Report 9293805 (Version 1)
Quarter: 2013Q2

REPORT INFORMATION
  Report Type: Spontaneous
  Country: DE (occurrence: DE)
  Receive Date: 20130516
  Receipt Date: 20130516
  Transmission Date: 20140414
  Serious: Yes (Hospitalization)
  Sender: FDA-Public Use
  Company Number: GXKR2013DE001828

PATIENT
  Age: 83 Year
  Sex: Male

DRUGS (1)
  1. METOPROLOLSUCCINAT 1A PHARMA [Suspect]
     Dosage: 47.5 MG, QD
     Route: 048
     Dates: start: 201302

REACTIONS (1)
  - Hyperglycaemia [Unknown]
